FAERS Safety Report 14567027 (Version 1)
Quarter: 2018Q1

REPORT INFORMATION
  Report Type: Spontaneous
  Country: US (occurrence: US)
  Receive Date: 20180222
  Receipt Date: 20180222
  Transmission Date: 20180509
  Serious: Yes (Other)
  Sender: FDA-Public Use
  Company Number: None

PATIENT
  Age: 31 Year
  Sex: Female
  Weight: 56.25 kg

DRUGS (1)
  1. WAL-SLEEP Z [Suspect]
     Active Substance: DIPHENHYDRAMINE HYDROCHLORIDE
     Indication: INSOMNIA
     Route: 048
     Dates: start: 20180211, end: 20180220

REACTIONS (6)
  - Hypertension [None]
  - Product taste abnormal [None]
  - Constipation [None]
  - Headache [None]
  - Migraine [None]
  - Product odour abnormal [None]

NARRATIVE: CASE EVENT DATE: 20180211
